FAERS Safety Report 8269955-1 (Version None)
Quarter: 2012Q2

REPORT INFORMATION
  Report Type: 
  Country: None (occurrence: None)
  Receive Date: 20120410
  Receipt Date: 20120403
  Transmission Date: 20120825
  Serious: No
  Sender: FDA-Public Use
  Company Number: US-PFIZER INC-2012039848

PATIENT
  Sex: Male
  Weight: 79 kg

DRUGS (3)
  1. SUTENT [Suspect]
     Dosage: UNK
     Dates: start: 20120324
  2. GLEEVEC [Suspect]
     Dosage: 400 MG, UNK
     Dates: start: 20080303, end: 20111212
  3. SUTENT [Suspect]
     Indication: GASTROINTESTINAL STROMAL TUMOUR
     Dosage: 50 MG, UNK; 28 DAYS ACTIVE FOLLOWED BY 14 DAYS
     Dates: start: 20111226

REACTIONS (7)
  - FATIGUE [None]
  - TENDERNESS [None]
  - JOINT SWELLING [None]
  - DISEASE PROGRESSION [None]
  - MUSCULAR WEAKNESS [None]
  - GASTROINTESTINAL STROMAL TUMOUR [None]
  - WEIGHT INCREASED [None]
